FAERS Safety Report 10404303 (Version 1)
Quarter: 2014Q1

REPORT INFORMATION
  Report Type: Spontaneous
  Country: US (occurrence: None)
  Receive Date: 20131226
  Receipt Date: 20131226
  Transmission Date: 20141002
  Serious: Yes (Other)
  Sender: FDA-Public Use
  Company Number: PHEH2012US005550

PATIENT
  Age: 12 Year
  Sex: Male

DRUGS (9)
  1. AFINITOR (RAD) UNKNOWN [Suspect]
     Indication: TUBEROUS SCLEROSIS
     Route: 048
     Dates: start: 20120114
  2. TOPAMAX (TOPIRAMATE) [Concomitant]
  3. LAMICTAL (LAMOTRIGINE) [Concomitant]
  4. CLONAZEPAM [Concomitant]
  5. ENALAPRIL [Concomitant]
  6. RISPERDAL (RISPERIDONE) [Concomitant]
  7. DIASTAT (DIAZEPAM) (5 MILLIGRAM, GEL) (DIAZEPAM) [Concomitant]
  8. GUANFACINE [Concomitant]
  9. ASPIRIN (ACETYLSALICYLIC ACID) [Concomitant]

REACTIONS (7)
  - Clonic convulsion [None]
  - Sleep disorder [None]
  - Drug level below therapeutic [None]
  - Cough [None]
  - Nasopharyngitis [None]
  - Rhinorrhoea [None]
  - Decreased appetite [None]
